FAERS Safety Report 7842483-0 (Version None)
Quarter: 2011Q4

REPORT INFORMATION
  Report Type: 
  Country: None (occurrence: None)
  Receive Date: 20111025
  Receipt Date: 20111018
  Transmission Date: 20120403
  Serious: Yes (Hospitalization, Other)
  Sender: FDA-Public Use
  Company Number: PHEH2011US07398

PATIENT
  Age: 16 Year
  Sex: Male
  Weight: 42.177 kg

DRUGS (2)
  1. PULMOZYME [Concomitant]
  2. TOBI [Suspect]
     Dosage: 300 MG, BID FOR 28 DAYS EVERY OTHER MONTH
     Dates: start: 20080228

REACTIONS (1)
  - UPPER RESPIRATORY TRACT INFECTION [None]
